FAERS Safety Report 17694022 (Version 1)
Quarter: 2020Q2

REPORT INFORMATION
  Report Type: Spontaneous
  Country: GB (occurrence: GB)
  Receive Date: 20200422
  Receipt Date: 20200422
  Transmission Date: 20200714
  Serious: No
  Sender: FDA-Public Use
  Company Number: GB-EMD SERONO-9156791

PATIENT
  Age: 54 Year
  Sex: Female

DRUGS (1)
  1. MAVENCLAD [Suspect]
     Active Substance: CLADRIBINE
     Indication: MULTIPLE SCLEROSIS
     Dosage: WEEK ONE THERAPY: ONE TABLET ON DAYS 1 TO 4.
     Route: 048
     Dates: start: 20191120

REACTIONS (6)
  - Dyspnoea [Not Recovered/Not Resolved]
  - Coronavirus infection [Unknown]
  - Musculoskeletal pain [Unknown]
  - Band sensation [Unknown]
  - Multiple sclerosis [Unknown]
  - Chest pain [Unknown]
